FAERS Safety Report 15266258 (Version 2)
Quarter: 2018Q3

REPORT INFORMATION
  Report Type: Spontaneous
  Country: IT (occurrence: IT)
  Receive Date: 20180810
  Receipt Date: 20180814
  Transmission Date: 20181010
  Serious: Yes (Life-Threatening)
  Sender: FDA-Public Use
  Company Number: IT-JNJFOC-20180809788

PATIENT
  Age: 10 Year
  Sex: Male
  Weight: 17 kg

DRUGS (5)
  1. RIVOTRIL [Suspect]
     Active Substance: CLONAZEPAM
     Indication: EPILEPSY
     Route: 048
     Dates: start: 20180123
  2. DINTOINA [Suspect]
     Active Substance: PHENYTOIN SODIUM
     Indication: EPILEPSY
     Route: 048
  3. FRISIUM [Suspect]
     Active Substance: CLOBAZAM
     Indication: EPILEPSY
     Route: 048
  4. TOPIRAMATE. [Suspect]
     Active Substance: TOPIRAMATE
     Indication: EPILEPSY
     Route: 048
  5. PHENOBARBITAL. [Suspect]
     Active Substance: PHENOBARBITAL
     Indication: EPILEPSY
     Dosage: TOTAL
     Route: 065

REACTIONS (7)
  - Hypokalaemia [Recovering/Resolving]
  - Poor feeding infant [Recovering/Resolving]
  - Hypotonia [Recovering/Resolving]
  - Hypocalcaemia [Recovering/Resolving]
  - Hyperchloraemia [Recovering/Resolving]
  - Sopor [Recovering/Resolving]
  - Hypernatraemia [Recovering/Resolving]

NARRATIVE: CASE EVENT DATE: 20180124
